FAERS Safety Report 16787129 (Version 1)
Quarter: 2019Q3

REPORT INFORMATION
  Report Type: Spontaneous
  Country: US (occurrence: US)
  Receive Date: 20190909
  Receipt Date: 20190909
  Transmission Date: 20191005
  Serious: No
  Sender: FDA-Public Use
  Company Number: US-SA-2019SA248822

PATIENT
  Age: 71 Year
  Sex: Female
  Weight: 60.3 kg

DRUGS (1)
  1. DUPIXENT [Suspect]
     Active Substance: DUPILUMAB
     Indication: DERMATITIS ALLERGIC
     Dosage: 300 MG, QOW
     Route: 058
     Dates: start: 20180801

REACTIONS (4)
  - Dry skin [Unknown]
  - Rash macular [Unknown]
  - Eczema [Unknown]
  - Skin exfoliation [Unknown]
